FAERS Safety Report 15827814 (Version 4)
Quarter: 2019Q2

REPORT INFORMATION
  Report Type: Spontaneous
  Country: JP (occurrence: JP)
  Receive Date: 20190115
  Receipt Date: 20190530
  Transmission Date: 20190711
  Serious: Yes (Death)
  Sender: FDA-Public Use
  Company Number: JP-NOVOPROD-641648

PATIENT
  Age: 20 Year
  Sex: Male
  Weight: 54 kg

DRUGS (14)
  1. NORDITROPIN [Suspect]
     Active Substance: SOMATROPIN
     Dosage: 0.40MG X 7 TIMES/WEEK
     Route: 058
     Dates: start: 20180602
  2. NORDITROPIN [Suspect]
     Active Substance: SOMATROPIN
     Dosage: 1.60MG X 7 TIMES/WEEK
     Route: 058
     Dates: start: 20180825
  3. NORDITROPIN [Suspect]
     Active Substance: SOMATROPIN
     Dosage: UNK
     Route: 058
  4. CHORIOGONADOTROPIN ALFA RECOMBINANT [Concomitant]
     Indication: HYPOPITUITARISM
     Dosage: UNK (5000IU X 6 WEEKS)
     Route: 058
     Dates: start: 20170417, end: 20181016
  5. CORTRIL [Concomitant]
     Active Substance: HYDROCORTISONE
     Dosage: 15MG
     Dates: start: 20040818
  6. DESMOPRESSIN [Concomitant]
     Active Substance: DESMOPRESSIN
     Dosage: UNK (2.5?G)
     Route: 045
     Dates: start: 20170825, end: 20181016
  7. CORTRIL [Concomitant]
     Active Substance: HYDROCORTISONE
     Dosage: UNK (10MG)
     Route: 048
     Dates: start: 20131101, end: 20181016
  8. THYRADIN S [Concomitant]
     Active Substance: LEVOTHYROXINE SODIUM
     Dosage: UNK (62.5?G)
     Route: 048
     Dates: start: 20180601, end: 20181016
  9. NORDITROPIN [Suspect]
     Active Substance: SOMATROPIN
     Indication: HYPOPITUITARISM
     Dosage: 0.15MG/DOSE WAS STARTED 7 TIMES A WEEK
     Route: 058
     Dates: start: 20171222
  10. DESMOPRESSIN [Concomitant]
     Active Substance: DESMOPRESSIN
     Indication: HYPOPITUITARISM
     Dosage: ADMINISTRATION OF 2PUSH IN THE MORNING AND 2PUSH IN THE EVENING WAS STARTED
     Route: 045
     Dates: start: 20040818
  11. NORDITROPIN [Suspect]
     Active Substance: SOMATROPIN
     Dosage: 0.25MG X 7 TIMES/WEEK
     Route: 058
     Dates: start: 20180421
  12. NORDITROPIN [Suspect]
     Active Substance: SOMATROPIN
     Dosage: 0.80MG X 7 TIMES/WEEK
     Route: 058
     Dates: start: 20180714
  13. THYRADIN S [Concomitant]
     Active Substance: LEVOTHYROXINE SODIUM
     Indication: HYPOPITUITARISM
     Dosage: 50MCG
     Route: 048
     Dates: start: 20040818
  14. NORDITROPIN [Suspect]
     Active Substance: SOMATROPIN
     Dosage: 1 MG, QD (DECREASED TO 1MG)
     Route: 058
     Dates: end: 20181016

REACTIONS (4)
  - Insomnia [Unknown]
  - Completed suicide [Fatal]
  - Malaise [Not Recovered/Not Resolved]
  - Overdose [Unknown]

NARRATIVE: CASE EVENT DATE: 20180713
